FAERS Safety Report 12712918 (Version 2)
Quarter: 2016Q4

REPORT INFORMATION
  Report Type: Spontaneous
  Country: US (occurrence: US)
  Receive Date: 20160902
  Receipt Date: 20161021
  Transmission Date: 20170207
  Serious: Yes (Other)
  Sender: FDA-Public Use
  Company Number: US-BAUSCH-BL-2016-020770

PATIENT
  Age: 44 Year
  Sex: Male

DRUGS (3)
  1. PAZEO 0.7 % OPHTHALMIC SOLUTION [Concomitant]
     Indication: PRODUCT USED FOR UNKNOWN INDICATION
     Dates: start: 20160623
  2. COLLYRIUM EYE WASH [Suspect]
     Active Substance: WATER
     Indication: EYE IRRIGATION
     Route: 047
     Dates: start: 20160825, end: 20160825
  3. CLARITIN [Concomitant]
     Active Substance: LORATADINE
     Indication: PRODUCT USED FOR UNKNOWN INDICATION
     Route: 048
     Dates: start: 20140819

REACTIONS (2)
  - Corneal perforation [Unknown]
  - Eye burns [Recovering/Resolving]

NARRATIVE: CASE EVENT DATE: 20160825
